FAERS Safety Report 11447407 (Version 1)
Quarter: 2015Q3

REPORT INFORMATION
  Report Type: Spontaneous
  Country: US (occurrence: US)
  Receive Date: 20150902
  Receipt Date: 20150902
  Transmission Date: 20151125
  Serious: No
  Sender: FDA-Public Use
  Company Number: US-JNJFOC-20150803555

PATIENT
  Sex: Female
  Weight: 57.61 kg

DRUGS (3)
  1. RISPERIDONE. [Suspect]
     Active Substance: RISPERIDONE
     Indication: MENTAL IMPAIRMENT
     Route: 048
  2. BENZTROPINE [Concomitant]
     Active Substance: BENZTROPINE
     Indication: MUSCULOSKELETAL STIFFNESS
     Route: 048
  3. RISPERIDONE. [Suspect]
     Active Substance: RISPERIDONE
     Indication: READING DISORDER
     Route: 048

REACTIONS (6)
  - Tongue biting [Recovered/Resolved]
  - Insomnia [Recovered/Resolved]
  - Swollen tongue [Recovered/Resolved]
  - Product use issue [Unknown]
  - Mouth swelling [Recovered/Resolved]
  - Thinking abnormal [Recovered/Resolved]
